FAERS Safety Report 8221110 (Version 3)
Quarter: 2014Q3

REPORT INFORMATION
  Report Type: Spontaneous
  Country: US (occurrence: US)
  Receive Date: 20111102
  Receipt Date: 20140723
  Transmission Date: 20150326
  Serious: Yes (Death, Congenital Anomaly, Other)
  Sender: FDA-Public Use
  Company Number: US-PFIZER INC-2011264232

PATIENT
  Sex: Female
  Weight: 2 kg

DRUGS (15)
  1. NOVOLOG [Concomitant]
     Active Substance: INSULIN ASPART
     Dosage: UNK
     Route: 064
  2. FLUCONAZOLE. [Concomitant]
     Active Substance: FLUCONAZOLE
     Dosage: UNK
     Route: 064
  3. CEPHALEXIN. [Concomitant]
     Active Substance: CEPHALEXIN
     Dosage: UNK
     Route: 064
  4. RELION/NOVOLIN R [Concomitant]
     Dosage: UNK
     Route: 064
  5. DARVOCET [Concomitant]
     Active Substance: ACETAMINOPHEN\PROPOXYPHENE HYDROCHLORIDE
     Dosage: UNK
     Route: 064
  6. NITROFURANTOIN. [Concomitant]
     Active Substance: NITROFURANTOIN
     Dosage: UNK
     Route: 064
  7. PROPOXYPHENE / APAP [Concomitant]
     Dosage: UNK
     Route: 064
  8. ZOLOFT [Suspect]
     Active Substance: SERTRALINE HYDROCHLORIDE
     Dosage: UNK
     Route: 064
     Dates: start: 200905, end: 200910
  9. INSULIN [Concomitant]
     Active Substance: INSULIN NOS
     Dosage: UNK
     Route: 064
  10. SERTRALINE HCL [Suspect]
     Active Substance: SERTRALINE HYDROCHLORIDE
     Dosage: UNK
     Route: 064
     Dates: start: 200905, end: 200910
  11. HYDROCODONE/ APAP [Concomitant]
     Active Substance: ACETAMINOPHEN\HYDROCODONE
     Dosage: UNK
     Route: 064
  12. PRENATAL VITAMINS [Concomitant]
     Active Substance: VITAMINS
     Dosage: UNK
     Route: 064
  13. ONDANSETRON [Concomitant]
     Active Substance: ONDANSETRON
     Dosage: UNK
     Route: 064
  14. AMOX/K CLAV [Concomitant]
     Dosage: UNK
     Route: 064
  15. GLUCAGON. [Concomitant]
     Active Substance: GLUCAGON
     Dosage: UNK
     Route: 064

REACTIONS (16)
  - Maternal exposure timing unspecified [Fatal]
  - Multiple cardiac defects [Fatal]
  - Atrial septal defect [Fatal]
  - Systolic dysfunction [Unknown]
  - Premature baby [Unknown]
  - Congenital pulmonary artery anomaly [Fatal]
  - Pulmonary malformation [Fatal]
  - Ventricular hypertrophy [Unknown]
  - Congenital aortic stenosis [Unknown]
  - Fallot^s tetralogy [Fatal]
  - Truncus arteriosus persistent [Fatal]
  - Myocardial ischaemia [Fatal]
  - Congenital arterial malformation [Unknown]
  - Congenital pulmonary valve atresia [Fatal]
  - Ventricular hypokinesia [Unknown]
  - Cardiac failure [Unknown]

NARRATIVE: CASE EVENT DATE: 20091027
